FAERS Safety Report 18924190 (Version 1)
Quarter: 2021Q1

REPORT INFORMATION
  Report Type: Spontaneous
  Country: US (occurrence: US)
  Receive Date: 20210222
  Receipt Date: 20210222
  Transmission Date: 20210420
  Serious: No
  Sender: FDA-Public Use
  Company Number: US-ASTRAZENECA-2021A064903

PATIENT
  Age: 60 Year
  Sex: Female

DRUGS (2)
  1. LYNPARZA [Suspect]
     Active Substance: OLAPARIB
     Indication: MALIGNANT PERITONEAL NEOPLASM
     Dosage: 300 MILLIGRAM, BID (ONCE IN MORNING AND ONCE AT NIGHT)
     Route: 048
     Dates: start: 201904, end: 2021
  2. LYNPARZA [Suspect]
     Active Substance: OLAPARIB
     Indication: MALIGNANT PERITONEAL NEOPLASM
     Dosage: 250 MILLIGRAM, BID (ONCE IN MORNING AND ONCE AT NIGHT)
     Route: 048
     Dates: start: 2021

REACTIONS (5)
  - Constipation [Unknown]
  - Dizziness [Unknown]
  - Fatigue [Unknown]
  - Exposure to SARS-CoV-2 [Unknown]
  - Blood test abnormal [Recovering/Resolving]

NARRATIVE: CASE EVENT DATE: 201904
